FAERS Safety Report 5252801-8 (Version None)
Quarter: 2007Q1

REPORT INFORMATION
  Report Type: 
  Country: None (occurrence: None)
  Receive Date: 20070301
  Receipt Date: 20061205
  Transmission Date: 20070707
  Serious: No
  Sender: FDA-Public Use
  Company Number: US-GLAXOSMITHKLINE-A0630445A

PATIENT
  Age: 17 Year
  Sex: Female

DRUGS (5)
  1. LAMICTAL [Suspect]
     Indication: EPILEPSY
     Dosage: 400MG PER DAY
     Route: 048
     Dates: start: 20030101
  2. ZYRTEC [Concomitant]
  3. BIRTH CONTROL [Concomitant]
  4. FOLIC ACID [Concomitant]
  5. MULTI-VITAMIN [Concomitant]

REACTIONS (3)
  - AMNESIA [None]
  - INSOMNIA [None]
  - RASH PRURITIC [None]
